FAERS Safety Report 7897451 (Version 4)
Quarter: 2016Q3

REPORT INFORMATION
  Report Type: Spontaneous
  Country: US (occurrence: US)
  Receive Date: 20110413
  Receipt Date: 20160923
  Transmission Date: 20161109
  Serious: Yes (Other)
  Sender: FDA-Public Use
  Company Number: US-ASTRAZENECA-2009UW11818

PATIENT
  Age: 72 Year
  Sex: Female
  Weight: 61.2 kg

DRUGS (12)
  1. NEXIUM [Suspect]
     Active Substance: ESOMEPRAZOLE MAGNESIUM
     Route: 048
  2. TOPROL XL [Suspect]
     Active Substance: METOPROLOL SUCCINATE
     Indication: CARDIAC DISORDER
     Dosage: GENERIC, 50 MG TWO TIMES A DAY
     Route: 048
     Dates: start: 20160909
  3. PLAVIX [Concomitant]
     Active Substance: CLOPIDOGREL BISULFATE
  4. GLUCOPHAGE [Concomitant]
     Active Substance: METFORMIN HYDROCHLORIDE
  5. TRICO [Concomitant]
     Active Substance: METRONIDAZOLE
  6. TRANXENE T-TAB [Concomitant]
     Active Substance: CLORAZEPATE DIPOTASSIUM
     Indication: SLEEP DISORDER
     Route: 048
  7. TOPROL XL [Suspect]
     Active Substance: METOPROLOL SUCCINATE
     Indication: CARDIAC DISORDER
     Route: 048
     Dates: start: 1993
  8. TOPROL XL [Suspect]
     Active Substance: METOPROLOL SUCCINATE
     Indication: CARDIAC DISORDER
     Dosage: GENERIC, 50 MG TWO TIMES A DAY
     Route: 048
     Dates: start: 201607
  9. METOPROLOL. [Suspect]
     Active Substance: METOPROLOL
     Dosage: GENERIC, 50 MG TABS BID
     Route: 048
  10. PREVACID [Concomitant]
     Active Substance: LANSOPRAZOLE
  11. IMDUR [Concomitant]
     Active Substance: ISOSORBIDE MONONITRATE
  12. CRESTOR [Suspect]
     Active Substance: ROSUVASTATIN CALCIUM
     Indication: CARDIAC DISORDER
     Route: 048

REACTIONS (7)
  - Spinal fracture [Unknown]
  - Abdominal pain upper [Unknown]
  - Pyrexia [Unknown]
  - Blood glucose increased [Unknown]
  - Drug dose omission [Unknown]
  - Angina pectoris [Unknown]
  - Heart rate increased [Unknown]
